FAERS Safety Report 9827190 (Version 1)
Quarter: 2014Q1

REPORT INFORMATION
  Report Type: Spontaneous
  Country: US (occurrence: US)
  Receive Date: 20140117
  Receipt Date: 20140117
  Transmission Date: 20141002
  Serious: No
  Sender: FDA-Public Use
  Company Number: US-GLAXOSMITHKLINE-A1045655A

PATIENT
  Age: 52 Year
  Sex: Female

DRUGS (4)
  1. PROMACTA [Suspect]
     Indication: PRODUCT USED FOR UNKNOWN INDICATION
     Route: 048
  2. PREDNISONE [Concomitant]
  3. METOPROLOL [Concomitant]
  4. LEVOTHYROXIN [Concomitant]

REACTIONS (1)
  - Platelet count decreased [Unknown]
